FAERS Safety Report 13038557 (Version 2)
Quarter: 2016Q4

REPORT INFORMATION
  Report Type: Spontaneous
  Country: US (occurrence: US)
  Receive Date: 20161219
  Receipt Date: 20161219
  Transmission Date: 20170207
  Serious: No
  Sender: FDA-Public Use
  Company Number: US-AUROBINDO-AUR-APL-2016-12775

PATIENT
  Age: 7 Year
  Sex: Male
  Weight: 27.21 kg

DRUGS (2)
  1. SERTRALINE HYDROCHLORIDE ORAL CONCENTRATE 20 MG/ML [Suspect]
     Active Substance: SERTRALINE HYDROCHLORIDE
     Indication: INTERMITTENT EXPLOSIVE DISORDER
     Dosage: 2 MG, DAILY
     Route: 048
     Dates: start: 201609
  2. SERTRALINE HYDROCHLORIDE ORAL CONCENTRATE 20 MG/ML [Suspect]
     Active Substance: SERTRALINE HYDROCHLORIDE
     Indication: AUTISM

REACTIONS (1)
  - Vomiting [Recovered/Resolved]

NARRATIVE: CASE EVENT DATE: 201609
